FAERS Safety Report 7817316-9 (Version None)
Quarter: 2011Q4

REPORT INFORMATION
  Report Type: 
  Country: None (occurrence: None)
  Receive Date: 20111012
  Receipt Date: 20110929
  Transmission Date: 20120403
  Serious: Yes (Other)
  Sender: FDA-Public Use
  Company Number: 2011AP002270

PATIENT
  Age: 8 Year
  Sex: Male

DRUGS (1)
  1. VALPROIC ACID [Suspect]

REACTIONS (2)
  - ATAXIA [None]
  - MOTOR DYSFUNCTION [None]
